FAERS Safety Report 6117570-8 (Version None)
Quarter: 2009Q1

REPORT INFORMATION
  Report Type: 
  Country: None (occurrence: None)
  Receive Date: 20090314
  Receipt Date: 20090121
  Transmission Date: 20090719
  Serious: No
  Sender: FDA-Public Use
  Company Number: US-ABBOTT-09P-163-0499273-00

PATIENT
  Sex: Male
  Weight: 74.456 kg

DRUGS (11)
  1. HUMIRA [Suspect]
     Indication: CROHN'S DISEASE
     Dates: start: 20071001
  2. METHADONE HCL [Concomitant]
     Indication: PAIN
  3. XANAX [Concomitant]
     Indication: ANXIETY
  4. DALMAINE [Concomitant]
     Indication: INSOMNIA
  5. NEURONTIN [Concomitant]
     Indication: DRUG USE FOR UNKNOWN INDICATION
  6. ASACOL [Concomitant]
     Indication: CROHN'S DISEASE
  7. PROTONIX [Concomitant]
     Indication: ULCER
     Dates: start: 20080101
  8. XISAXAN [Concomitant]
     Indication: CROHN'S DISEASE
  9. WELCHOL [Concomitant]
     Indication: BLOOD CHOLESTEROL
  10. NORVASC [Concomitant]
     Indication: HYPERTENSION
  11. LOTENSIN [Concomitant]
     Indication: HYPERTENSION

REACTIONS (4)
  - ARTHRALGIA [None]
  - FIBROMYALGIA [None]
  - HIATUS HERNIA [None]
  - ULCER [None]
